FAERS Safety Report 5397301-X (Version None)
Quarter: 2007Q3

REPORT INFORMATION
  Report Type: 
  Country: None (occurrence: None)
  Receive Date: 20070723
  Receipt Date: 20070706
  Transmission Date: 20080115
  Serious: Yes (Life-Threatening)
  Sender: FDA-Public Use
  Company Number: 2007P1000346

PATIENT
  Age: 40 Year
  Sex: Female

DRUGS (6)
  1. BUSULFAN (BUSULFAN) [Suspect]
     Indication: STEM CELL TRANSPLANT
     Dosage: IV
     Route: 042
     Dates: start: 20070105, end: 20070106
  2. CYCLOPHOSPHAMIDE [Suspect]
     Indication: STEM CELL TRANSPLANT
     Dosage: 3200 MG; QD; IV
     Route: 042
     Dates: start: 20070109, end: 20070110
  3. METHOTREXATE [Suspect]
     Indication: DRUG USE FOR UNKNOWN INDICATION
  4. VALPROATE SODIUM [Concomitant]
  5. FILGRASTIM [Concomitant]
  6. CYCLOSPORINE [Concomitant]

REACTIONS (5)
  - ACUTE GRAFT VERSUS HOST DISEASE [None]
  - DIARRHOEA [None]
  - PHARYNGEAL ERYTHEMA [None]
  - SEPSIS [None]
  - STOMATITIS [None]
